FAERS Safety Report 12450932 (Version 1)
Quarter: 2016Q2

REPORT INFORMATION
  Report Type: Spontaneous
  Country: None (occurrence: None)
  Receive Date: 20160608
  Receipt Date: 20160608
  Transmission Date: 20160815
  Serious: No
  Sender: FDA-Public Use
  Company Number: None

PATIENT
  Age: 20 Year
  Sex: Female
  Weight: 66 kg

DRUGS (1)
  1. OPTION 2 [Suspect]
     Active Substance: LEVONORGESTREL

REACTIONS (1)
  - Pruritus genital [None]

NARRATIVE: CASE EVENT DATE: 20160406
